FAERS Safety Report 23521590 (Version 2)
Quarter: 2024Q1

REPORT INFORMATION
  Report Type: Spontaneous
  Country: US (occurrence: US)
  Receive Date: 20240214
  Receipt Date: 20240311
  Transmission Date: 20240409
  Serious: No
  Sender: FDA-Public Use
  Company Number: US-UNITED THERAPEUTICS-UNT-2024-003845

PATIENT
  Age: 53 Year
  Sex: Male

DRUGS (18)
  1. ORENITRAM [Suspect]
     Active Substance: TREPROSTINIL
     Indication: Pulmonary arterial hypertension
     Dosage: 0.25 MG, TID
     Route: 048
  2. ORENITRAM [Suspect]
     Active Substance: TREPROSTINIL
     Dosage: 0.625 MG, TID
     Route: 048
  3. ORENITRAM [Suspect]
     Active Substance: TREPROSTINIL
     Dosage: UNK
     Route: 048
     Dates: start: 20240129
  4. DULOXETINE [Concomitant]
     Active Substance: DULOXETINE
     Indication: Depression
     Dosage: 30 MG, QD
     Route: 048
  5. SYMBICORT [Concomitant]
     Active Substance: BUDESONIDE\FORMOTEROL FUMARATE DIHYDRATE
     Indication: Respiratory disorder
     Dosage: 0.5 MG/2 ML
  6. TRELEGY ELLIPTA [Concomitant]
     Active Substance: FLUTICASONE FUROATE\UMECLIDINIUM BROMIDE\VILANTEROL TRIFENATATE
     Indication: Respiratory disorder
     Dosage: 100 MG, QD
  7. BUMEX [Concomitant]
     Active Substance: BUMETANIDE
     Indication: Cardiac failure
     Dosage: 2 MG, QD
     Route: 048
  8. WARFARIN SODIUM [Concomitant]
     Active Substance: WARFARIN SODIUM
     Indication: Pulmonary embolism
     Dosage: 3 MG, QD
     Route: 048
  9. AMLODIPINE [Concomitant]
     Active Substance: AMLODIPINE BESYLATE
     Indication: Cardiac failure
     Dosage: 5 MG, QD
     Route: 048
  10. BROVANA [Concomitant]
     Active Substance: ARFORMOTEROL TARTRATE
     Indication: Respiratory disorder
     Dosage: 15 MCG/2 ML
  11. DIGOXIN [Concomitant]
     Active Substance: DIGOXIN
     Indication: Cardiac failure
     Dosage: 100 MCG, QD
     Route: 048
  12. TADALAFIL [Concomitant]
     Active Substance: TADALAFIL
     Indication: Pulmonary arterial hypertension
     Dosage: 40 MG, QD
     Route: 048
  13. PROBENECID [Concomitant]
     Active Substance: PROBENECID
     Indication: Gout
     Dosage: 250 MG, BID
     Route: 048
  14. LIPITOR [Concomitant]
     Active Substance: ATORVASTATIN CALCIUM
     Indication: Blood cholesterol abnormal
     Dosage: 40 MG, QD
     Route: 048
  15. PEPCID [Concomitant]
     Active Substance: FAMOTIDINE
     Indication: Gastrooesophageal reflux disease
     Dosage: 20 MG, QD
     Route: 048
  16. FENTANYL [Concomitant]
     Active Substance: FENTANYL\FENTANYL CITRATE
     Indication: Pain
     Dosage: 50 MCG, QOD
     Route: 062
  17. SINGULAIR [Concomitant]
     Active Substance: MONTELUKAST SODIUM
     Indication: Respiratory disorder
     Dosage: 10 MG, QD
     Route: 048
  18. ALBUTEROL [Concomitant]
     Active Substance: ALBUTEROL
     Indication: Respiratory disorder
     Dosage: 2.5 MG, BID

REACTIONS (6)
  - Abdominal pain upper [Not Recovered/Not Resolved]
  - Respiratory tract congestion [Not Recovered/Not Resolved]
  - Productive cough [Not Recovered/Not Resolved]
  - Pyrexia [Not Recovered/Not Resolved]
  - Oxygen saturation decreased [Not Recovered/Not Resolved]
  - Intentional dose omission [Recovered/Resolved]

NARRATIVE: CASE EVENT DATE: 20240129
